FAERS Safety Report 6018198-0 (Version None)
Quarter: 2008Q4

REPORT INFORMATION
  Report Type: 
  Country: None (occurrence: None)
  Receive Date: 20081223
  Receipt Date: 20081215
  Transmission Date: 20090506
  Serious: Yes (Disabling, Other)
  Sender: FDA-Public Use
  Company Number: PHHY2008GB32087

PATIENT
  Sex: Female
  Weight: 44.9 kg

DRUGS (6)
  1. RECLAST [Suspect]
     Indication: OSTEOPOROSIS
     Dosage: 5 MG
     Route: 042
     Dates: start: 20080225
  2. GABAPENTIN [Concomitant]
     Indication: MULTIPLE SCLEROSIS
     Dosage: 100 MG
     Route: 048
  3. DILANTIN [Concomitant]
     Indication: MULTIPLE SCLEROSIS
  4. BACLOFEN [Concomitant]
     Indication: MULTIPLE SCLEROSIS
     Dosage: 5 MG, QD
  5. TYLEX [Concomitant]
     Indication: MULTIPLE SCLEROSIS
     Route: 048
  6. COD-LIVER OIL [Concomitant]
     Indication: OSTEOPOROSIS
     Route: 048

REACTIONS (11)
  - ARTHRALGIA [None]
  - ASTHENIA [None]
  - BURNING SENSATION [None]
  - FATIGUE [None]
  - FEELING COLD [None]
  - HEART RATE ABNORMAL [None]
  - MOOD SWINGS [None]
  - MUSCLE SPASMS [None]
  - OEDEMA PERIPHERAL [None]
  - PALPITATIONS [None]
  - SKIN ULCER [None]
